FAERS Safety Report 8827743 (Version 1)
Quarter: 2012Q4

REPORT INFORMATION
  Report Type: 
  Country: US (occurrence: US)
  Receive Date: 20121008
  Receipt Date: 20121008
  Transmission Date: 20130627
  Serious: No
  Sender: FDA-Public Use
  Company Number: US-PFIZER INC-2012243594

PATIENT
  Sex: Female

DRUGS (4)
  1. PREMARIN [Suspect]
     Indication: VULVOVAGINAL DRYNESS
     Dosage: UNK
     Route: 067
     Dates: start: 201209
  2. PREMARIN [Suspect]
     Indication: VULVOVAGINAL PRURITUS
  3. PREMARIN [Suspect]
     Indication: VULVOVAGINAL BURNING SENSATION
  4. CEFONICID [Suspect]
     Indication: FUNGAL INFECTION
     Dosage: UNK

REACTIONS (2)
  - Drug ineffective [Unknown]
  - Product quality issue [Unknown]
